FAERS Safety Report 19787584 (Version 1)
Quarter: 2021Q3

REPORT INFORMATION
  Report Type: Spontaneous
  Country: US (occurrence: US)
  Receive Date: 20210903
  Receipt Date: 20210903
  Transmission Date: 20211014
  Serious: Yes (Other)
  Sender: FDA-Public Use
  Company Number: US-GLAXOSMITHKLINE-US2021GSK188450

PATIENT
  Sex: Female

DRUGS (5)
  1. RANITIDINE. [Suspect]
     Active Substance: RANITIDINE
     Dosage: UNK, WE
     Route: 065
     Dates: start: 200001, end: 201801
  2. ZANTAC [Suspect]
     Active Substance: RANITIDINE HYDROCHLORIDE
     Dosage: UNK UNK, WE
     Route: 065
     Dates: start: 200001, end: 201801
  3. RANITIDINE. [Suspect]
     Active Substance: RANITIDINE
     Dosage: UNK, WE
     Route: 065
     Dates: start: 200001, end: 201801
  4. RANITIDINE HYDROCHLORIDE. [Suspect]
     Active Substance: RANITIDINE HYDROCHLORIDE
     Dosage: UNK UNK, WE
     Route: 065
     Dates: start: 200001, end: 201801
  5. ZANTAC [Suspect]
     Active Substance: RANITIDINE HYDROCHLORIDE
     Dosage: UNK UNK, WE
     Route: 065
     Dates: start: 200001, end: 201801

REACTIONS (6)
  - Bladder cancer [Unknown]
  - Colon cancer [Unknown]
  - Breast cancer [Unknown]
  - Lung neoplasm malignant [Unknown]
  - Colorectal cancer [Unknown]
  - Brain neoplasm malignant [Unknown]
